FAERS Safety Report 21002403 (Version 2)
Quarter: 2022Q3

REPORT INFORMATION
  Report Type: Spontaneous
  Country: US (occurrence: US)
  Receive Date: 20220624
  Receipt Date: 20220707
  Transmission Date: 20221026
  Serious: No
  Sender: FDA-Public Use
  Company Number: US-UNITED THERAPEUTICS-UNT-2022-013531

PATIENT
  Sex: Female

DRUGS (2)
  1. REMODULIN [Suspect]
     Active Substance: TREPROSTINIL
     Indication: Pulmonary arterial hypertension
     Dosage: UNK, CONTINUING
     Route: 058
     Dates: start: 20140630
  2. REMODULIN [Suspect]
     Active Substance: TREPROSTINIL
     Dosage: 0.111 ?G/KG, CONTINUING
     Route: 058

REACTIONS (11)
  - Infusion site reaction [Unknown]
  - Infusion site scar [Unknown]
  - Device maintenance issue [Unknown]
  - Infusion site pain [Not Recovered/Not Resolved]
  - Infusion site discharge [Unknown]
  - Oedema [Unknown]
  - Cough [Unknown]
  - Infusion site erythema [Not Recovered/Not Resolved]
  - Infusion site swelling [Not Recovered/Not Resolved]
  - Device leakage [Unknown]
  - Therapy non-responder [Unknown]
